FAERS Safety Report 25757264 (Version 1)
Quarter: 2025Q3

REPORT INFORMATION
  Report Type: Spontaneous
  Country: US (occurrence: US)
  Receive Date: 20250903
  Receipt Date: 20250903
  Transmission Date: 20251021
  Serious: No
  Sender: BAUSCH AND LOMB
  Company Number: US-BAUSCHBL-2025BNL015091

PATIENT
  Age: 78 Year
  Sex: Male

DRUGS (7)
  1. XIIDRA [Suspect]
     Active Substance: LIFITEGRAST
     Indication: Dry eye
     Dosage: 1 DROP IN BOTH EYES TWICE A DAY
     Route: 047
     Dates: start: 20250820, end: 20250823
  2. DEXAMETHASONE\NEOMYCIN\POLYMYXIN B SULFATE [Suspect]
     Active Substance: DEXAMETHASONE\NEOMYCIN\POLYMYXIN B SULFATE
     Indication: Blepharitis
     Dosage: ? INCH RIBBON IN EACH EYE DAILY FOR 10 DAYS
     Route: 047
     Dates: start: 2024, end: 2024
  3. DEXAMETHASONE\NEOMYCIN\POLYMYXIN B SULFATE [Suspect]
     Active Substance: DEXAMETHASONE\NEOMYCIN\POLYMYXIN B SULFATE
     Dosage: ONCE A WEEK
     Route: 047
     Dates: end: 202508
  4. DEXAMETHASONE\NEOMYCIN\POLYMYXIN B SULFATE [Suspect]
     Active Substance: DEXAMETHASONE\NEOMYCIN\POLYMYXIN B SULFATE
     Route: 047
     Dates: start: 20250820
  5. LOTEMAX [Suspect]
     Active Substance: LOTEPREDNOL ETABONATE
     Indication: Product used for unknown indication
     Route: 047
     Dates: start: 202412, end: 202412
  6. TOBRAMYCIN AND DEXAMETHASONE [Suspect]
     Active Substance: DEXAMETHASONE\TOBRAMYCIN
     Indication: Product used for unknown indication
     Dosage: 4 TIMES A DAY FOR 4 WEEKS
     Route: 047
     Dates: start: 202501
  7. SYSTANE (HYPROMELLOSE 2910 (4000 MPA.S)) [Concomitant]
     Active Substance: HYPROMELLOSE 2910 (4000 MPA.S)
     Indication: Product used for unknown indication
     Dates: start: 20250820

REACTIONS (9)
  - Eye irritation [Recovered/Resolved]
  - Eye pain [Recovered/Resolved]
  - Photophobia [Unknown]
  - Lacrimation increased [Unknown]
  - Condition aggravated [Unknown]
  - Vision blurred [Unknown]
  - Intentional product use issue [Unknown]
  - Extra dose administered [Unknown]
  - Inappropriate schedule of product administration [Unknown]

NARRATIVE: CASE EVENT DATE: 20241201
